FAERS Safety Report 9219247 (Version 1)
Quarter: 2013Q2

REPORT INFORMATION
  Report Type: Spontaneous
  Country: IL (occurrence: IL)
  Receive Date: 20130409
  Receipt Date: 20130409
  Transmission Date: 20140414
  Serious: Yes (Hospitalization, Other)
  Sender: FDA-Public Use
  Company Number: IL-BAYER-2013-038993

PATIENT
  Age: 64 Year
  Sex: Female

DRUGS (3)
  1. NEXAVAR [Suspect]
     Indication: THYROID CANCER
     Dosage: 400 MG, BID
     Dates: start: 201211
  2. NEXAVAR [Suspect]
     Indication: THYROID CANCER
     Dosage: 200 MG, BID
  3. ANTIHYPERTENSIVES [Concomitant]
     Indication: HYPERTENSION

REACTIONS (4)
  - Procedural pain [Unknown]
  - Post procedural infection [Unknown]
  - Off label use [Unknown]
  - Fistula discharge [Recovering/Resolving]
